FAERS Safety Report 8846472 (Version 2)
Quarter: 2012Q4

REPORT INFORMATION
  Report Type: 
  Country: US (occurrence: US)
  Receive Date: 20121017
  Receipt Date: 20121204
  Transmission Date: 20130627
  Serious: Yes (Hospitalization, Other)
  Sender: FDA-Public Use
  Company Number: US-PFIZER INC-2012257312

PATIENT
  Age: 49 Year
  Sex: Male
  Weight: 111 kg

DRUGS (3)
  1. LYRICA [Suspect]
     Indication: NEUROPATHY PERIPHERAL
     Dosage: 75 mg, 2x/day
  2. GLIPIZIDE [Concomitant]
     Indication: DIABETES
     Dosage: 10 mg, 2x/day
  3. LINAGLIPTIN [Concomitant]
     Indication: DIABETES
     Dosage: 5 mg, daily

REACTIONS (6)
  - Nephrolithiasis [Not Recovered/Not Resolved]
  - Renal failure [Not Recovered/Not Resolved]
  - Bladder disorder [Not Recovered/Not Resolved]
  - Intervertebral disc protrusion [Not Recovered/Not Resolved]
  - Nerve compression [Not Recovered/Not Resolved]
  - Infection [Not Recovered/Not Resolved]
